FAERS Safety Report 9887403 (Version 1)
Quarter: 2014Q1

REPORT INFORMATION
  Report Type: Spontaneous
  Country: US (occurrence: US)
  Receive Date: 20140211
  Receipt Date: 20140211
  Transmission Date: 20141002
  Serious: Yes (Hospitalization)
  Sender: FDA-Public Use
  Company Number: US-SHIRE-ALL1-2014-00840

PATIENT
  Age: 37 Year
  Sex: Female
  Weight: 93.42 kg

DRUGS (5)
  1. FIRAZYR [Suspect]
     Indication: HEREDITARY ANGIOEDEMA
     Dosage: 30 MG, AS REQ^D
     Route: 058
     Dates: start: 20131127
  2. FIRAZYR [Suspect]
     Dosage: 30 MG, AS REQ^D
     Route: 058
     Dates: start: 2011, end: 2012
  3. METOPROLOL [Concomitant]
     Indication: HYPERTENSION
     Dosage: 25 MG, 2X/DAY:BID
     Route: 048
     Dates: start: 2007
  4. AMLODIPINE [Concomitant]
     Indication: HYPERTENSION
     Dosage: 5 MG, 1X/DAY:QD
     Route: 048
     Dates: start: 2007
  5. TYLENOL PM EXTRA STRENGTH [Concomitant]
     Indication: HEADACHE
     Dosage: UNK, AS REQ^D
     Route: 048

REACTIONS (12)
  - Pharyngeal oedema [Recovered/Resolved]
  - Heart rate increased [Recovered/Resolved]
  - Feeling of relaxation [Not Recovered/Not Resolved]
  - Fatigue [Not Recovered/Not Resolved]
  - Local swelling [Recovering/Resolving]
  - Dysuria [Recovering/Resolving]
  - Vulvovaginal swelling [Recovering/Resolving]
  - Mucous stools [Recovering/Resolving]
  - Abdominal distension [Recovering/Resolving]
  - Burning sensation [Recovering/Resolving]
  - Pain in extremity [Recovering/Resolving]
  - Pain [Recovered/Resolved]
